FAERS Safety Report 9294205 (Version 1)
Quarter: 2013Q2

REPORT INFORMATION
  Report Type: Report from Study
  Country: HU (occurrence: HU)
  Receive Date: 20130516
  Receipt Date: 20130516
  Transmission Date: 20140414
  Serious: Yes (Hospitalization)
  Sender: FDA-Public Use
  Company Number: HU-BAXTER-2013BAX017677

PATIENT
  Age: 57 Year
  Sex: Female
  Weight: 68 kg

DRUGS (28)
  1. ENDOXAN 1G POR OLDATOS INJEKCI?HOZ [Suspect]
     Indication: DIFFUSE LARGE B-CELL LYMPHOMA
     Route: 042
     Dates: start: 20120207
  2. DOXORUBICIN [Suspect]
     Indication: DIFFUSE LARGE B-CELL LYMPHOMA
     Route: 042
     Dates: start: 20120207
  3. VINCRISTINE [Suspect]
     Indication: DIFFUSE LARGE B-CELL LYMPHOMA
     Route: 042
     Dates: start: 20120207
  4. PREDNISONE [Suspect]
     Indication: DIFFUSE LARGE B-CELL LYMPHOMA
     Route: 065
     Dates: start: 20120207
  5. RAMIPRIL [Concomitant]
     Indication: HYPERTENSION
     Route: 065
     Dates: start: 20120214
  6. NEBIVOLOL [Concomitant]
     Indication: HYPERTENSION
     Route: 065
     Dates: start: 20100601
  7. PANTOPRAZOLE [Concomitant]
     Indication: GASTRITIS
     Route: 065
     Dates: start: 20120124
  8. PANTOPRAZOLE [Concomitant]
     Indication: GASTROOESOPHAGEAL REFLUX DISEASE
  9. ENOXAPARIN SODIUM [Concomitant]
     Indication: EMBOLISM
     Route: 065
     Dates: start: 20120130, end: 20120530
  10. ALPRAZOLAM [Concomitant]
     Indication: SLEEP DISORDER
     Route: 065
     Dates: start: 20111001
  11. ALLOPURINOL [Concomitant]
     Indication: HYPERURICAEMIA
     Route: 065
     Dates: start: 20120130, end: 20120807
  12. FLUCONAZOLE [Concomitant]
     Indication: FUNGAL INFECTION
     Route: 065
     Dates: start: 20120227, end: 20120326
  13. SUMETROLIM [Concomitant]
     Indication: PNEUMOCYSTIS JIROVECII PNEUMONIA
     Route: 065
     Dates: start: 20120227, end: 20120807
  14. CIPROFLOXACIN [Concomitant]
     Indication: BACTERIAL INFECTION
     Route: 065
     Dates: start: 20120227, end: 20120326
  15. VALSARTAN [Concomitant]
     Indication: HYPERTENSION
     Route: 065
     Dates: start: 20111201, end: 20120214
  16. MEROPENEM [Concomitant]
     Indication: FEBRILE NEUTROPENIA
     Route: 065
     Dates: start: 20120219, end: 20120224
  17. KALIUM CHLORATUM [Concomitant]
     Indication: HYPOKALAEMIA
     Route: 065
     Dates: start: 20120228, end: 20120303
  18. DIMETINDENE [Concomitant]
     Indication: PREMEDICATION
     Route: 065
     Dates: start: 20120207, end: 20120207
  19. DIMETINDENE [Concomitant]
     Route: 065
     Dates: start: 20120214, end: 20120214
  20. DIMETINDENE [Concomitant]
     Route: 065
     Dates: start: 20120228, end: 20120228
  21. PARACETAMOLUM [Concomitant]
     Indication: PREMEDICATION
     Route: 065
     Dates: start: 20120207, end: 20120207
  22. PARACETAMOLUM [Concomitant]
     Route: 065
     Dates: start: 20120214, end: 20120214
  23. PARACETAMOLUM [Concomitant]
     Route: 065
     Dates: start: 20120228, end: 20120228
  24. PREDNISOLONE [Concomitant]
     Indication: PREMEDICATION
     Route: 065
     Dates: start: 20120214, end: 20120214
  25. METHYLPREDNISOLONE [Concomitant]
     Indication: PRODUCT USED FOR UNKNOWN INDICATION
     Route: 042
     Dates: start: 20120207, end: 20120207
  26. ONDANSETRON [Concomitant]
     Indication: NAUSEA
     Route: 042
     Dates: start: 20120228, end: 20120228
  27. METAMIZOLE SODIUM [Concomitant]
     Indication: PYREXIA
     Route: 065
     Dates: start: 20120217, end: 20120217
  28. BROMHEXINE [Concomitant]
     Indication: COUGH
     Route: 065
     Dates: start: 20120217, end: 20120219

REACTIONS (2)
  - Febrile neutropenia [Recovered/Resolved]
  - Pneumonia [Recovered/Resolved]
